FAERS Safety Report 4421088-8 (Version None)
Quarter: 2004Q3

REPORT INFORMATION
  Report Type: 
  Country: None (occurrence: None)
  Receive Date: 20040809
  Receipt Date: 20040720
  Transmission Date: 20050211
  Serious: Yes (Death, Hospitalization)
  Sender: FDA-Public Use
  Company Number: JP-BRISTOL-MYERS SQUIBB COMPANY-12646725

PATIENT
  Age: 66 Year
  Sex: Male

DRUGS (7)
  1. TAXOL [Suspect]
     Indication: GASTRIC CANCER
     Dosage: THERAPY DATES: 30-APR-2004 TO 08-JUL-2004
     Route: 041
     Dates: start: 20040708, end: 20040708
  2. DECADRON [Concomitant]
     Route: 042
  3. GASTER [Concomitant]
  4. MS CONTIN [Concomitant]
     Route: 048
  5. MAGNESIUM OXIDE [Concomitant]
     Route: 048
  6. LASIX [Concomitant]
     Route: 048
  7. LENDORM [Concomitant]
     Route: 048

REACTIONS (4)
  - ADRENAL INSUFFICIENCY [None]
  - GASTRIC CANCER [None]
  - HYPOGLYCAEMIA [None]
  - SHOCK HYPOGLYCAEMIC [None]
